FAERS Safety Report 9960372 (Version 1)
Quarter: 2014Q1

REPORT INFORMATION
  Report Type: Report from Study
  Country: US (occurrence: US)
  Receive Date: 20140305
  Receipt Date: 20140305
  Transmission Date: 20141002
  Serious: No
  Sender: FDA-Public Use
  Company Number: US-ABBVIE-13P-163-1101478-00

PATIENT
  Age: 76 Year
  Sex: Female

DRUGS (15)
  1. HUMIRA [Suspect]
     Indication: COLITIS ULCERATIVE
     Dosage: LOADING DOSE
     Route: 058
     Dates: start: 20130601, end: 20130601
  2. HUMIRA [Suspect]
     Route: 058
  3. RISPERDAL [Concomitant]
     Indication: DEPRESSION
  4. RISPERDAL [Concomitant]
     Indication: ANXIETY
  5. LAMICTAL [Concomitant]
     Indication: DEPRESSION
  6. LAMICTAL [Concomitant]
     Indication: ANXIETY
  7. PROVIGIL [Concomitant]
     Indication: DEPRESSION
  8. PROVIGIL [Concomitant]
     Indication: ANXIETY
  9. ASACOL [Concomitant]
     Indication: GASTRIC DISORDER
  10. BUDESONIDE [Concomitant]
     Indication: COLITIS ULCERATIVE
  11. SYNTHROID [Concomitant]
     Indication: HYPOTHYROIDISM
  12. CELEBREX [Concomitant]
     Indication: PRODUCT USED FOR UNKNOWN INDICATION
  13. FENOFIBRATE [Concomitant]
     Indication: BLOOD CHOLESTEROL ABNORMAL
  14. ATENOLOL [Concomitant]
     Indication: BLOOD PRESSURE ABNORMAL
  15. VERAPAMIL [Concomitant]
     Indication: BLOOD PRESSURE ABNORMAL

REACTIONS (1)
  - Dizziness [Recovered/Resolved]
